FAERS Safety Report 9902539 (Version 2)
Quarter: 2014Q1

REPORT INFORMATION
  Report Type: Spontaneous
  Country: US (occurrence: US)
  Receive Date: 20140217
  Receipt Date: 20140217
  Transmission Date: 20141002
  Serious: Yes (Other)
  Sender: FDA-Public Use
  Company Number: US-GILEAD-2011-0043973

PATIENT
  Age: 59 Year
  Sex: Male

DRUGS (5)
  1. LETAIRIS [Suspect]
     Indication: PULMONARY HYPERTENSION
     Dosage: 5 MG, QD
     Route: 048
     Dates: start: 20110810
  2. LETAIRIS [Suspect]
     Indication: CONGENITAL ANOMALY
  3. LETAIRIS [Suspect]
     Indication: VENTRICULAR SEPTAL DEFECT REPAIR
  4. LETAIRIS [Suspect]
     Indication: PROSTHESIS IMPLANTATION
  5. LETAIRIS [Suspect]
     Indication: MITRAL VALVE REPLACEMENT

REACTIONS (4)
  - Cardiac failure [Recovering/Resolving]
  - Palpitations [Recovered/Resolved]
  - Hot flush [Recovered/Resolved]
  - Swelling [Recovered/Resolved]
